FAERS Safety Report 8683552 (Version 2)
Quarter: 2012Q4

REPORT INFORMATION
  Report Type: Spontaneous
  Country: US (occurrence: None)
  Receive Date: 20120710
  Receipt Date: 20120814
  Transmission Date: 20130627
  Serious: Yes (Other)
  Sender: FDA-Public Use
  Company Number: 2012P1046011

PATIENT

DRUGS (10)
  1. ONDANSETRON [Suspect]
     Dosage: 4 MG;IV
     Route: 042
     Dates: start: 20120623, end: 20120623
  2. SIMVASTATIN [Concomitant]
  3. LISINOPRIL [Concomitant]
  4. DOCUSATE [Concomitant]
  5. FLUOXETINE [Concomitant]
  6. CARVEDILOL [Concomitant]
  7. SITAGLIPTIN [Concomitant]
  8. CEPHALEXIN [Concomitant]
  9. NORCO [Concomitant]
  10. INSULIN [Concomitant]

REACTIONS (1)
  - Endotracheal intubation [None]
